FAERS Safety Report 5498714-8 (Version None)
Quarter: 2007Q4

REPORT INFORMATION
  Report Type: 
  Country: None (occurrence: None)
  Receive Date: 20071026
  Receipt Date: 20070709
  Transmission Date: 20080405
  Serious: No
  Sender: FDA-Public Use
  Company Number: A0662502A

PATIENT
  Age: 66 Year
  Sex: Female

DRUGS (9)
  1. ADVAIR DISKUS 100/50 [Suspect]
     Indication: CHRONIC OBSTRUCTIVE PULMONARY DISEASE
     Route: 055
     Dates: start: 20070701
  2. NASACORT [Concomitant]
  3. PRILOSEC [Concomitant]
  4. ASA BABY [Concomitant]
  5. PREMPRO [Concomitant]
  6. UNISOM [Concomitant]
  7. M.V.I. [Concomitant]
  8. CALCIUM + VIT D [Concomitant]
  9. FLAXSEED OIL [Concomitant]

REACTIONS (1)
  - MUSCLE SPASMS [None]
